FAERS Safety Report 7968753-3 (Version None)
Quarter: 2011Q4

REPORT INFORMATION
  Report Type: 
  Country: None (occurrence: None)
  Receive Date: 20111122
  Receipt Date: 20110718
  Transmission Date: 20120403
  Serious: Yes (Other)
  Sender: FDA-Public Use
  Company Number: PHHY2011US65478

PATIENT
  Age: 59 Year
  Sex: Female

DRUGS (10)
  1. KLONOPIN [Concomitant]
  2. HYDROCODONE BITARTRATE [Concomitant]
  3. LEVOTHYROXINE SODIUM [Concomitant]
  4. ADDERALL XR (AMFETAMINE ASPARTATE, AMFETAMINE SULFATE, DEXAMFETAMINE S [Concomitant]
  5. ALPRAZOLAM [Concomitant]
  6. IMMUNE GLOBULIN (HUMAN) [Concomitant]
  7. CYTOMEL [Concomitant]
  8. DULOXETINE HYDROCHLORIDE [Concomitant]
  9. LAMOTRIGINE [Concomitant]
  10. GILENYA [Suspect]
     Indication: MULTIPLE SCLEROSIS
     Dosage: 0.5 MG, DAILY, ORAL
     Route: 048
     Dates: start: 20101216, end: 20110630

REACTIONS (4)
  - LEUKOPENIA [None]
  - ATAXIA [None]
  - DIZZINESS [None]
  - NAUSEA [None]
